FAERS Safety Report 23992221 (Version 1)
Quarter: 2024Q2

REPORT INFORMATION
  Report Type: Spontaneous
  Country: JP (occurrence: JP)
  Receive Date: 20240620
  Receipt Date: 20240620
  Transmission Date: 20240716
  Serious: Yes (Other)
  Sender: FDA-Public Use
  Company Number: JP-STRIDES ARCOLAB LIMITED-2024SP007135

PATIENT

DRUGS (4)
  1. CYCLOSPORINE [Suspect]
     Active Substance: CYCLOSPORINE
     Indication: Haemophagocytic lymphohistiocytosis
     Dosage: UNK; A COURSE
     Route: 065
  2. PREDNISOLONE [Suspect]
     Active Substance: PREDNISOLONE
     Indication: Product used for unknown indication
     Dosage: UNK
     Route: 065
  3. DEXAMETHASONE [Suspect]
     Active Substance: DEXAMETHASONE
     Indication: Haemophagocytic lymphohistiocytosis
     Dosage: UNK (A COURSE)
     Route: 065
  4. TOCILIZUMAB [Suspect]
     Active Substance: TOCILIZUMAB
     Indication: Product used for unknown indication
     Dosage: UNK
     Route: 065

REACTIONS (14)
  - Hypoxia [Unknown]
  - Pancytopenia [Unknown]
  - Liver injury [Unknown]
  - Clostridium difficile infection [Unknown]
  - Activated partial thromboplastin time prolonged [Unknown]
  - Subcutaneous haematoma [Unknown]
  - Immobilisation syndrome [Unknown]
  - Skin exfoliation [Unknown]
  - Device related infection [Unknown]
  - Depression [Unknown]
  - Haematological infection [Unknown]
  - Fungal infection [Unknown]
  - Hypertension [Unknown]
  - Off label use [Unknown]
